FAERS Safety Report 8528243 (Version 7)
Quarter: 2015Q1

REPORT INFORMATION
  Report Type: Spontaneous
  Country: FI (occurrence: FI)
  Receive Date: 20120424
  Receipt Date: 20150330
  Transmission Date: 20150721
  Serious: Yes (Disabling, Other)
  Sender: FDA-Public Use
  Company Number: FI-ROCHE-744270

PATIENT
  Age: 60 Year
  Sex: Female

DRUGS (4)
  1. CYCLOPHOSPHAMIDE. [Suspect]
     Active Substance: CYCLOPHOSPHAMIDE
     Indication: VASCULITIS CEREBRAL
  2. CORTISONE [Concomitant]
     Active Substance: CORTISONE\HYDROCORTISONE
     Indication: LUPUS VASCULITIS
  3. MABTHERA [Suspect]
     Active Substance: RITUXIMAB
     Indication: LUPUS VASCULITIS
     Dosage: FREQUENCY: TWO INFUSIONS
     Route: 042
     Dates: start: 20091111, end: 20091229
  4. CYCLOPHOSPHAMIDE. [Suspect]
     Active Substance: CYCLOPHOSPHAMIDE
     Indication: SYSTEMIC LUPUS ERYTHEMATOSUS
     Dosage: SIX 1000 MG CYCLES
     Route: 042
     Dates: start: 20090526, end: 20091021

REACTIONS (3)
  - Osteoporotic fracture [Unknown]
  - Iron deficiency anaemia [Recovered/Resolved]
  - Progressive multifocal leukoencephalopathy [Not Recovered/Not Resolved]

NARRATIVE: CASE EVENT DATE: 20100504
